FAERS Safety Report 15200848 (Version 2)
Quarter: 2018Q4

REPORT INFORMATION
  Report Type: Report from Study
  Country: PE (occurrence: PE)
  Receive Date: 20180726
  Receipt Date: 20181029
  Transmission Date: 20190204
  Serious: Yes (Other)
  Sender: FDA-Public Use
  Company Number: PE-SA-2018SA145972

PATIENT
  Age: 34 Year
  Sex: Female

DRUGS (5)
  1. INSULIN GLARGINE [Suspect]
     Active Substance: INSULIN GLARGINE
     Dosage: 18 U, QD
     Route: 058
     Dates: start: 201808
  2. METFORMIN [Concomitant]
     Active Substance: METFORMIN HYDROCHLORIDE
     Dosage: 850 MG, BID
  3. INSULIN GLARGINE [Suspect]
     Active Substance: INSULIN GLARGINE
     Dosage: 16 U, QD
     Route: 058
     Dates: start: 201807
  4. INSULIN GLARGINE [Suspect]
     Active Substance: INSULIN GLARGINE
     Indication: TYPE 1 DIABETES MELLITUS
     Dosage: 6-10 IU, QD
     Route: 058
     Dates: start: 20180501
  5. METFORMIN [Concomitant]
     Active Substance: METFORMIN HYDROCHLORIDE
     Indication: TYPE 1 DIABETES MELLITUS
     Dosage: 850 MG, QD
     Route: 048
     Dates: start: 2016

REACTIONS (5)
  - Blood glucose increased [Recovered/Resolved]
  - Pre-eclampsia [Not Recovered/Not Resolved]
  - Drug ineffective [Unknown]
  - Abortion threatened [Unknown]
  - Exposure during pregnancy [Unknown]

NARRATIVE: CASE EVENT DATE: 20181005
